FAERS Safety Report 7414338-7 (Version None)
Quarter: 2011Q2

REPORT INFORMATION
  Report Type: 
  Country: None (occurrence: None)
  Receive Date: 20110414
  Receipt Date: 20110405
  Transmission Date: 20111010
  Serious: Yes (Death, Other)
  Sender: FDA-Public Use
  Company Number: US-PFIZER INC-2011026138

PATIENT
  Sex: Female
  Weight: 84.354 kg

DRUGS (4)
  1. SOLU-MEDROL [Suspect]
     Dosage: 1 G, UNK
     Dates: start: 20100920
  2. COPAXONE [Suspect]
     Dosage: 20 MG, UNK
     Route: 058
     Dates: start: 20101001
  3. SOLU-MEDROL [Suspect]
     Indication: MULTIPLE SCLEROSIS
     Dosage: 1 G, UNK
     Route: 042
     Dates: start: 20100920, end: 20110111
  4. COPAXONE [Suspect]
     Indication: MULTIPLE SCLEROSIS
     Dosage: 20 MG, UNK
     Route: 058
     Dates: start: 20101001, end: 20110111

REACTIONS (3)
  - ASPARTATE AMINOTRANSFERASE INCREASED [None]
  - ALANINE AMINOTRANSFERASE INCREASED [None]
  - COMPLETED SUICIDE [None]
